FAERS Safety Report 8140781-7 (Version None)
Quarter: 2012Q1

REPORT INFORMATION
  Report Type: 
  Country: None (occurrence: None)
  Receive Date: 20120216
  Receipt Date: 20120208
  Transmission Date: 20120608
  Serious: Yes (Other)
  Sender: FDA-Public Use
  Company Number: US-BRISTOL-MYERS SQUIBB COMPANY-16390296

PATIENT
  Age: 45 Year
  Sex: Female

DRUGS (1)
  1. ERBITUX [Suspect]

REACTIONS (1)
  - SMALL INTESTINAL OBSTRUCTION [None]
